FAERS Safety Report 7894450-9 (Version None)
Quarter: 2011Q4

REPORT INFORMATION
  Report Type: 
  Country: None (occurrence: None)
  Receive Date: 20111105
  Receipt Date: 20111031
  Transmission Date: 20120403
  Serious: Yes (Other)
  Sender: FDA-Public Use
  Company Number: CN-ASTRAZENECA-2011SE65576

PATIENT

DRUGS (4)
  1. LIDOCAINE [Suspect]
     Indication: BRONCHOALVEOLAR LAVAGE
     Route: 042
  2. AMIKACIN [Suspect]
     Indication: BRONCHOALVEOLAR LAVAGE
     Route: 065
  3. LIDOCAINE [Suspect]
     Indication: LIGHT ANAESTHESIA
     Route: 042
  4. NS [Concomitant]

REACTIONS (2)
  - COUGH [None]
  - CHOKING [None]
